FAERS Safety Report 7480791-6 (Version None)
Quarter: 2011Q2

REPORT INFORMATION
  Report Type: 
  Country: None (occurrence: None)
  Receive Date: 20110516
  Receipt Date: 20110502
  Transmission Date: 20111010
  Serious: Yes (Other)
  Sender: FDA-Public Use
  Company Number: US-ELI_LILLY_AND_COMPANY-US200909001584

PATIENT
  Sex: Male

DRUGS (16)
  1. FORTEO [Suspect]
     Indication: OSTEOPOROSIS
     Dosage: 20 UG, DAILY (1/D)
     Dates: start: 20090701, end: 20101209
  2. METRONIDAZOLE [Concomitant]
     Dosage: UNK, UNKNOWN
     Route: 065
  3. LIPITOR [Concomitant]
     Dosage: UNK, UNKNOWN
     Route: 065
  4. OMEPRAZOLE [Concomitant]
     Dosage: UNK, UNKNOWN
     Route: 065
  5. VIAGRA [Concomitant]
  6. ASPIRIN [Concomitant]
     Dosage: UNK, UNKNOWN
     Route: 065
  7. DIAZEPAM [Concomitant]
     Dosage: UNK, UNKNOWN
     Route: 065
  8. FISH OIL [Concomitant]
     Dosage: UNK, UNKNOWN
     Route: 065
  9. MULTIVITAMINS PLUS IRON [Concomitant]
     Dosage: UNK, UNKNOWN
     Route: 065
  10. VITAMIN D [Concomitant]
     Dosage: 2000 IU, QD
  11. CALCIUM W/VITAMIN D                /00188401/ [Concomitant]
  12. MALARONE [Concomitant]
  13. FORTEO [Suspect]
     Dosage: 20 UG, QD
  14. LIALDA [Concomitant]
     Dosage: UNK, UNKNOWN
     Route: 065
  15. ALTACE [Concomitant]
     Dosage: UNK, UNKNOWN
     Route: 065
  16. PREDNISONE [Concomitant]
     Dosage: UNK, UNKNOWN
     Route: 065

REACTIONS (4)
  - EYE NAEVUS [None]
  - VITREOUS FLOATERS [None]
  - MALIGNANT MELANOMA [None]
  - ARTHRALGIA [None]
